FAERS Safety Report 6036497-3 (Version None)
Quarter: 2009Q1

REPORT INFORMATION
  Report Type: 
  Country: None (occurrence: None)
  Receive Date: 20090112
  Receipt Date: 20081225
  Transmission Date: 20090719
  Serious: Yes (Hospitalization)
  Sender: FDA-Public Use
  Company Number: A-JP2008-22939

PATIENT
  Age: 62 Year
  Sex: Female
  Weight: 44 kg

DRUGS (11)
  1. TRACLEER [Suspect]
     Indication: PULMONARY HYPERTENSION
     Dosage: 125 MG BID ORAL62.5 MG BID ORAL
     Route: 048
     Dates: start: 20080827, end: 20080923
  2. TRACLEER [Suspect]
     Indication: PULMONARY HYPERTENSION
     Dosage: 125 MG BID ORAL62.5 MG BID ORAL
     Route: 048
     Dates: start: 20080924, end: 20081020
  3. LANSOPRAZOLE [Concomitant]
  4. MAGNESIUM OXIDE (MAGNESIUM OXIDE) [Concomitant]
  5. PREDNISOLONE [Concomitant]
  6. ALENDRONATE SODIUM [Concomitant]
  7. ETHYL ICOSAPENTATE (ETHYL ICOSAPENTE) [Concomitant]
  8. FUROSEMIDE (FUROSEMIDE) [Concomitant]
  9. SPIRONOLACTONE [Concomitant]
  10. CARVEDILOL [Concomitant]
  11. SENNOSIDE (SENNOSIDE A+B CALCIUM) [Concomitant]

REACTIONS (14)
  - ALANINE AMINOTRANSFERASE INCREASED [None]
  - ARTHRALGIA [None]
  - ASPARTATE AMINOTRANSFERASE INCREASED [None]
  - BLOOD ALKALINE PHOSPHATASE INCREASED [None]
  - HAEMOGLOBIN DECREASED [None]
  - HEPATIC CONGESTION [None]
  - HEPATIC FUNCTION ABNORMAL [None]
  - OEDEMA [None]
  - OEDEMA PERIPHERAL [None]
  - PLEURAL EFFUSION [None]
  - POLYARTHRITIS [None]
  - PYREXIA [None]
  - SWELLING [None]
  - TENDERNESS [None]
